FAERS Safety Report 25212685 (Version 1)
Quarter: 2025Q2

REPORT INFORMATION
  Report Type: Spontaneous
  Country: CN (occurrence: CN)
  Receive Date: 20250418
  Receipt Date: 20250418
  Transmission Date: 20250717
  Serious: Yes (Other)
  Sender: SANOFI AVENTIS
  Company Number: CN-SA-2025SA110174

PATIENT
  Age: 59 Year
  Sex: Female
  Weight: 66 kg

DRUGS (4)
  1. CLOPIDOGREL BISULFATE [Suspect]
     Active Substance: CLOPIDOGREL BISULFATE
     Indication: Coronary artery disease
     Dosage: 75 MG, QD
     Route: 048
     Dates: start: 20250329, end: 20250404
  2. CLOPIDOGREL BISULFATE [Suspect]
     Active Substance: CLOPIDOGREL BISULFATE
     Indication: Angina pectoris
  3. ASPIRIN [Suspect]
     Active Substance: ASPIRIN
     Indication: Coronary artery disease
     Dosage: 100 MG, QD
     Route: 048
     Dates: start: 20250329, end: 20250404
  4. ASPIRIN [Suspect]
     Active Substance: ASPIRIN
     Indication: Angina pectoris

REACTIONS (2)
  - Gastrooesophageal reflux disease [Recovered/Resolved]
  - Abdominal pain upper [Recovered/Resolved]

NARRATIVE: CASE EVENT DATE: 20250401
